FAERS Safety Report 5218166-2 (Version None)
Quarter: 2007Q1

REPORT INFORMATION
  Report Type: 
  Country: None (occurrence: None)
  Receive Date: 20061130
  Receipt Date: 20060530
  Transmission Date: 20070707
  Serious: Yes (Hospitalization)
  Sender: FDA-Public Use
  Company Number: US200603000262

PATIENT
  Age: 26 Year
  Sex: Female
  Weight: 181.4 kg

DRUGS (13)
  1. ZYPREXA [Suspect]
     Dosage: SEE IMAGE
     Route: 048
     Dates: start: 19980818, end: 19980901
  2. ZYPREXA [Suspect]
     Dosage: SEE IMAGE
     Route: 048
     Dates: start: 19981001, end: 20000801
  3. ZYPREXA [Suspect]
     Dosage: SEE IMAGE
     Route: 048
     Dates: start: 20000801, end: 20020101
  4. SEROQUEL [Concomitant]
  5. RISPERIDONE [Concomitant]
  6. VISTARIL [Concomitant]
  7. FLUOXETINE [Concomitant]
  8. TRAZODONE HCL [Concomitant]
  9. TENORMIN / NEZ/ (ATENOLOL) [Concomitant]
  10. METOPROLOL TARTRATE [Concomitant]
  11. TRIAMCINOLONE [Concomitant]
  12. HYZAAR [Concomitant]
  13. DEPO-PROVERA [Concomitant]

REACTIONS (11)
  - DIABETES MELLITUS INSULIN-DEPENDENT [None]
  - DRUG EXPOSURE DURING PREGNANCY [None]
  - GESTATIONAL DIABETES [None]
  - GLUCOSE URINE PRESENT [None]
  - HYPERGLYCAEMIA [None]
  - HYPOGLYCAEMIA [None]
  - KETONURIA [None]
  - POLYDIPSIA [None]
  - POLYURIA [None]
  - VISION BLURRED [None]
  - WEIGHT INCREASED [None]
